FAERS Safety Report 6982495-2 (Version None)
Quarter: 2010Q3

REPORT INFORMATION
  Report Type: 
  Country: None (occurrence: None)
  Receive Date: 20100914
  Receipt Date: 20100204
  Transmission Date: 20110219
  Serious: No
  Sender: FDA-Public Use
  Company Number: US-PFIZER INC-2010016859

PATIENT
  Sex: Male
  Weight: 95.3 kg

DRUGS (2)
  1. LYRICA [Suspect]
     Indication: POST HERPETIC NEURALGIA
     Dosage: 75 MG, 3X/DAY
     Route: 048
     Dates: start: 20100125
  2. WARFARIN SODIUM [Concomitant]
     Dosage: UNK

REACTIONS (1)
  - POST HERPETIC NEURALGIA [None]
